FAERS Safety Report 5871818-3 (Version None)
Quarter: 2008Q3

REPORT INFORMATION
  Report Type: 
  Country: None (occurrence: None)
  Receive Date: 20080905
  Receipt Date: 20080902
  Transmission Date: 20090109
  Serious: Yes (Death)
  Sender: FDA-Public Use
  Company Number: US-BOEHRINGER INGELHEIM GMBH, GERMANY-2008-BP-13681RO

PATIENT
  Age: 37 Year
  Sex: Female

DRUGS (21)
  1. METHADONE HCL [Suspect]
     Indication: PAIN
     Dates: start: 20050601
  2. METHADONE HCL [Suspect]
     Dates: start: 20060601
  3. METHADONE HCL [Suspect]
     Dates: start: 20060706
  4. METHADOSE [Suspect]
     Indication: PAIN
     Dates: start: 20060713
  5. TRAMADOL HCL [Suspect]
  6. SOMA [Concomitant]
  7. CLONAZEPAM [Concomitant]
     Dates: start: 20030101
  8. ALBUTEROL [Concomitant]
  9. MIRALAZ [Concomitant]
  10. EFFEXOR [Concomitant]
     Dates: start: 20030101
  11. DETROL LA 10/500 [Concomitant]
  12. ASPIRIN [Concomitant]
  13. BENICAR [Concomitant]
  14. AVICOR [Concomitant]
  15. HYDROCODONE BITARTRATE [Concomitant]
     Dates: start: 20030101
  16. PROTONIC [Concomitant]
     Dates: start: 20030101
  17. SYNTHROID [Concomitant]
  18. MOBIC [Concomitant]
  19. RESTORIL [Concomitant]
  20. CELEBREX [Concomitant]
     Dates: start: 20030101, end: 20060701
  21. AMBIEN [Concomitant]
     Dates: end: 20060701

REACTIONS (13)
  - ARTHRALGIA [None]
  - BACK PAIN [None]
  - CARDIOMEGALY [None]
  - CARDIOVASCULAR DISORDER [None]
  - DRUG INEFFECTIVE [None]
  - DRUG TOXICITY [None]
  - HEPATOSPLENOMEGALY [None]
  - HYPERTENSION [None]
  - HYPOAESTHESIA [None]
  - MYALGIA [None]
  - PAIN IN EXTREMITY [None]
  - PULMONARY CONGESTION [None]
  - WALKING AID USER [None]
